FAERS Safety Report 9310423 (Version 1)
Quarter: 2013Q2

REPORT INFORMATION
  Report Type: Report from Study
  Country: AR (occurrence: AR)
  Receive Date: 20130527
  Receipt Date: 20130527
  Transmission Date: 20140414
  Serious: Yes (Other)
  Sender: FDA-Public Use
  Company Number: PHHY2013AR052429

PATIENT
  Age: 69 Year
  Sex: Female

DRUGS (1)
  1. DIOVAN [Suspect]
     Indication: HYPERTENSION
     Dosage: 0.5DF (160MG), DAILY
     Route: 048

REACTIONS (3)
  - Spinal column injury [Recovering/Resolving]
  - Fall [Unknown]
  - Wrong technique in drug usage process [Unknown]
